FAERS Safety Report 24856570 (Version 1)
Quarter: 2025Q1

REPORT INFORMATION
  Report Type: Spontaneous
  Country: CA (occurrence: CA)
  Receive Date: 20250117
  Receipt Date: 20250117
  Transmission Date: 20250408
  Serious: Yes (Other)
  Sender: REGENERON
  Company Number: CA-BAYER-2025A006176

PATIENT
  Age: 62 Year
  Sex: Female

DRUGS (2)
  1. EYLEA [Suspect]
     Active Substance: AFLIBERCEPT
     Indication: Ewing^s sarcoma
  2. KEYTRUDA [Suspect]
     Active Substance: PEMBROLIZUMAB
     Indication: Ewing^s sarcoma

REACTIONS (2)
  - Immune-mediated hypothyroidism [Unknown]
  - Product use in unapproved indication [Unknown]
